FAERS Safety Report 5455841-9 (Version None)
Quarter: 2007Q3

REPORT INFORMATION
  Report Type: 
  Country: None (occurrence: None)
  Receive Date: 20070918
  Receipt Date: 20070330
  Transmission Date: 20080115
  Serious: Yes (Other)
  Sender: FDA-Public Use
  Company Number: US-ASTRAZENECA-2006UW22846

PATIENT
  Age: 47 Year
  Sex: Female
  Weight: 77 kg

DRUGS (3)
  1. SEROQUEL [Suspect]
     Indication: SLEEP DISORDER
     Dosage: 25-50 MG
     Route: 048
     Dates: start: 20020101
  2. NAVANE [Concomitant]
     Dates: start: 19800101
  3. WELLBUTRIN [Concomitant]
     Dates: start: 19960101

REACTIONS (5)
  - BLOOD CHOLESTEROL INCREASED [None]
  - MUSCLE TIGHTNESS [None]
  - MUSCLE TWITCHING [None]
  - OBESITY [None]
  - PANCREATITIS [None]
